FAERS Safety Report 8850582 (Version 1)
Quarter: 2012Q4

REPORT INFORMATION
  Report Type: 
  Country: US (occurrence: US)
  Receive Date: 20121019
  Receipt Date: 20121019
  Transmission Date: 20130627
  Serious: No
  Sender: FDA-Public Use
  Company Number: US-009507513-1209USA005111

PATIENT
  Sex: Female

DRUGS (2)
  1. PROVENTIL [Suspect]
     Dosage: UNK, prn
     Route: 055
  2. VENTOLIN (ALBUTEROL SULFATE) [Concomitant]
     Dosage: UNK

REACTIONS (2)
  - Asthma [Recovering/Resolving]
  - Device failure [Unknown]
